FAERS Safety Report 14536752 (Version 2)
Quarter: 2019Q4

REPORT INFORMATION
  Report Type: Report from Study
  Country: CA (occurrence: CA)
  Receive Date: 20180215
  Receipt Date: 20191112
  Transmission Date: 20200122
  Serious: Yes (Death)
  Sender: FDA-Public Use
  Company Number: CA-REGENERON PHARMACEUTICALS, INC.-2018-13807

PATIENT

DRUGS (3)
  1. EYLEA [Suspect]
     Active Substance: AFLIBERCEPT
     Dosage: ONCE
     Dates: start: 20160602, end: 20160602
  2. EYLEA [Suspect]
     Active Substance: AFLIBERCEPT
     Dosage: ONCE
     Dates: start: 20160505, end: 20160505
  3. EYLEA [Suspect]
     Active Substance: AFLIBERCEPT
     Indication: NEOVASCULAR AGE-RELATED MACULAR DEGENERATION
     Dosage: ONCE
     Dates: start: 20160407, end: 20160407

REACTIONS (1)
  - Death [Fatal]

NARRATIVE: CASE EVENT DATE: 20160702
